FAERS Safety Report 9842194 (Version 2)
Quarter: 2014Q1

REPORT INFORMATION
  Report Type: Spontaneous
  Country: US (occurrence: US)
  Receive Date: 20140124
  Receipt Date: 20140218
  Transmission Date: 20141002
  Serious: Yes (Hospitalization)
  Sender: FDA-Public Use
  Company Number: US-GLAXOSMITHKLINE-A1056930A

PATIENT
  Age: 73 Year
  Sex: Female

DRUGS (12)
  1. ADVAIR [Suspect]
     Indication: ASTHMA
     Dosage: 1PUFF TWICE PER DAY
     Route: 055
  2. VITAMIN C [Concomitant]
  3. VITAMIN B12 [Concomitant]
  4. LECITHIN [Concomitant]
  5. VITAMIN [Concomitant]
  6. CALCIUM WITH VITAMIN D [Concomitant]
  7. FLAXSEED OIL [Concomitant]
  8. METOPROLOL [Concomitant]
  9. CLARINEX [Concomitant]
  10. WARFARIN [Concomitant]
  11. SLEEPING PILL [Concomitant]
  12. PAIN MEDICATION [Concomitant]

REACTIONS (5)
  - Wheezing [Recovering/Resolving]
  - Asthenia [Recovering/Resolving]
  - Cough [Recovering/Resolving]
  - Malaise [Recovering/Resolving]
  - Product quality issue [Unknown]
